FAERS Safety Report 4699430-2 (Version None)
Quarter: 2005Q2

REPORT INFORMATION
  Report Type: 
  Country: None (occurrence: None)
  Receive Date: 20050622
  Receipt Date: 20050614
  Transmission Date: 20051028
  Serious: Yes (Other)
  Sender: FDA-Public Use
  Company Number: 2005-06-0694

PATIENT
  Sex: Male

DRUGS (3)
  1. TEMODAL [Suspect]
     Indication: GLIOBLASTOMA
     Dosage: 450 MG QD ORAL
     Route: 048
     Dates: start: 20050101, end: 20050301
  2. RADIATION THERAPY [Concomitant]
  3. ZOFRAN (ONDANSETRON) TABLETS [Concomitant]

REACTIONS (1)
  - RENAL FAILURE [None]
